FAERS Safety Report 17347779 (Version 1)
Quarter: 2020Q1

REPORT INFORMATION
  Report Type: Spontaneous
  Country: US (occurrence: US)
  Receive Date: 20200129
  Receipt Date: 20200129
  Transmission Date: 20200409
  Serious: No
  Sender: FDA-Public Use
  Company Number: US-EXELIXIS-CABO-19025252

PATIENT
  Age: 23 Year
  Sex: Male

DRUGS (1)
  1. CABOMETYX [Suspect]
     Active Substance: CABOZANTINIB S-MALATE
     Indication: EWING^S SARCOMA
     Dosage: 40 MG, QD
     Route: 048
     Dates: start: 20190928

REACTIONS (3)
  - Brain neoplasm [Unknown]
  - Off label use [Unknown]
  - Malignant neoplasm progression [Unknown]

NARRATIVE: CASE EVENT DATE: 20191107
